FAERS Safety Report 17009221 (Version 14)
Quarter: 2020Q1

REPORT INFORMATION
  Report Type: Spontaneous
  Country: GB (occurrence: GB)
  Receive Date: 20191108
  Receipt Date: 20200320
  Transmission Date: 20200409
  Serious: Yes (Hospitalization, Other)
  Sender: FDA-Public Use
  Company Number: GB-MYLANLABS-2019M1106403

PATIENT
  Age: 40 Year
  Sex: Female

DRUGS (5)
  1. DIAZEPAM. [Concomitant]
     Active Substance: DIAZEPAM
     Indication: ANXIETY
     Dosage: 5 MILLIGRAM, QD
     Route: 048
  2. CLOZARIL [Suspect]
     Active Substance: CLOZAPINE
     Indication: SCHIZOPHRENIA
     Dosage: 400 MILLIGRAM
     Route: 048
     Dates: start: 20090526
  3. LAMOTRIGINE. [Concomitant]
     Active Substance: LAMOTRIGINE
     Indication: AFFECTIVE DISORDER
     Dosage: 250 MILLIGRAM, NOCTE
     Route: 048
  4. ZOPICLONE [Concomitant]
     Active Substance: ZOPICLONE
     Indication: INSOMNIA
     Dosage: 3.75 MILLIGRAM, NOCTE
     Route: 048
  5. VENLAFAXINE [Concomitant]
     Active Substance: VENLAFAXINE HYDROCHLORIDE
     Indication: DEPRESSED MOOD
     Dosage: 225 MILLIGRAM, QD
     Route: 048

REACTIONS (7)
  - Lymphoma [Not Recovered/Not Resolved]
  - Haemoglobin decreased [Unknown]
  - Leukopenia [Recovering/Resolving]
  - Agranulocytosis [Recovered/Resolved]
  - Hospitalisation [Not Recovered/Not Resolved]
  - Constipation [Unknown]
  - Thrombocytopenia [Recovered/Resolved]

NARRATIVE: CASE EVENT DATE: 201910
